FAERS Safety Report 9297981 (Version 1)
Quarter: 2013Q2

REPORT INFORMATION
  Report Type: Report from Study
  Country: CA (occurrence: CA)
  Receive Date: 20130520
  Receipt Date: 20130520
  Transmission Date: 20140414
  Serious: Yes (Hospitalization)
  Sender: FDA-Public Use
  Company Number: CA-JNJFOC-20130510444

PATIENT
  Age: 74 Year
  Sex: Male
  Weight: 74 kg

DRUGS (4)
  1. REMICADE [Suspect]
     Indication: RHEUMATOID ARTHRITIS
     Route: 042
  2. REMICADE [Suspect]
     Indication: RHEUMATOID ARTHRITIS
     Route: 042
     Dates: start: 20130513
  3. BENADRYL [Concomitant]
     Indication: PREMEDICATION
     Dosage: DOSE: 25 (UNITS UNSPECIFIED)
     Route: 048
  4. CORTISONE [Concomitant]
     Indication: PREMEDICATION
     Route: 042

REACTIONS (3)
  - Pulmonary embolism [Unknown]
  - Cerebrovascular accident [Unknown]
  - Oxygen saturation decreased [Unknown]
